FAERS Safety Report 8592537-9 (Version None)
Quarter: 2012Q3

REPORT INFORMATION
  Report Type: 
  Country: None (occurrence: None)
  Receive Date: 20120814
  Receipt Date: 20120730
  Transmission Date: 20120928
  Serious: No
  Sender: FDA-Public Use
  Company Number: US-009507513-1208USA000495

PATIENT

DRUGS (6)
  1. ONDANSETRON [Concomitant]
     Dosage: 15 MG/KG, UNK
  2. ADRIAMYCIN PFS [Concomitant]
  3. DEXAMETHASONE [Concomitant]
     Dosage: 8 MG, CYCLICAL
     Route: 048
  4. EMEND [Suspect]
     Indication: PROPHYLAXIS OF NAUSEA AND VOMITING
     Dosage: 150 MG, ONCE
     Route: 042
  5. DEXAMETHASONE [Concomitant]
     Dosage: 12 MG, UNK
     Route: 042
  6. CISPLATIN [Concomitant]

REACTIONS (1)
  - NAUSEA [None]
